FAERS Safety Report 8622681-9 (Version None)
Quarter: 2012Q3

REPORT INFORMATION
  Report Type: 
  Country: None (occurrence: None)
  Receive Date: 20120827
  Receipt Date: 20120817
  Transmission Date: 20120928
  Serious: Yes (Hospitalization, Other)
  Sender: FDA-Public Use
  Company Number: CA-JNJFOC-20120704355

PATIENT
  Sex: Female
  Weight: 46 kg

DRUGS (11)
  1. CYPROHEPTADINE HCL [Concomitant]
     Route: 065
  2. ADALAT CC [Concomitant]
     Route: 065
  3. ENTOCORT EC [Concomitant]
     Route: 065
  4. REMICADE [Suspect]
     Indication: CROHN'S DISEASE
     Dosage: ONCE IN 6 HOUR; 67 INFUSIONS
     Route: 042
     Dates: start: 20070307
  5. VITAMIN B-12 [Concomitant]
     Route: 065
  6. CITALOPRAM HYDROBROMIDE [Concomitant]
     Route: 065
  7. HYDROMORPHONE HYDROCHLORIDE [Concomitant]
     Route: 065
  8. LOMOTIL [Concomitant]
     Route: 065
  9. LENOLTEC NOS [Concomitant]
     Route: 065
  10. HYDROMORPHONE HCL [Concomitant]
     Route: 065
  11. ATIVAN [Concomitant]
     Route: 065

REACTIONS (2)
  - TOOTH INFECTION [None]
  - RENAL CANCER [None]
